FAERS Safety Report 23886949 (Version 1)
Quarter: 2024Q2

REPORT INFORMATION
  Report Type: Spontaneous
  Country: DK (occurrence: DK)
  Receive Date: 20240523
  Receipt Date: 20240523
  Transmission Date: 20240716
  Serious: Yes (Hospitalization, Other)
  Sender: FDA-Public Use
  Company Number: DK-MLMSERVICE-20240507-PI051932-00330-1

PATIENT
  Age: 76 Year
  Sex: Female

DRUGS (22)
  1. FUROSEMIDE [Suspect]
     Active Substance: FUROSEMIDE
     Indication: Urinary retention
     Dosage: 20 MG DAILY 3 TIMES WEEKLY
  2. DOXEPIN [Suspect]
     Active Substance: DOXEPIN
     Indication: Depression
  3. VENLAFAXINE [Suspect]
     Active Substance: VENLAFAXINE HYDROCHLORIDE
     Indication: Anxiety
  4. CLOTRIMAZOLE [Concomitant]
     Active Substance: CLOTRIMAZOLE
     Dosage: REGULAR BASIS
  5. MAGNESIUM [Concomitant]
     Active Substance: MAGNESIUM
     Dosage: REGULAR BASIS
  6. RISEDRONATE SODIUM [Concomitant]
     Active Substance: RISEDRONATE SODIUM
     Dosage: REGULAR BASIS
  7. ALBUTEROL [Concomitant]
     Active Substance: ALBUTEROL
     Dosage: AS NECESSARY
  8. CALCIUM [Concomitant]
     Active Substance: CALCIUM
     Dosage: REGULAR BASIS
  9. SEMAGLUTIDE [Concomitant]
     Active Substance: SEMAGLUTIDE
     Dosage: REGULAR BASIS
  10. PANTOPRAZOLE [Concomitant]
     Active Substance: PANTOPRAZOLE
     Dosage: REGULAR BASIS
  11. INSULIN GLARGINE [Concomitant]
     Active Substance: INSULIN GLARGINE
     Dosage: REGULAR BASIS
  12. FLUTICASONE FUROATE\VILANTEROL TRIFENATATE [Concomitant]
     Active Substance: FLUTICASONE FUROATE\VILANTEROL TRIFENATATE
     Dosage: AS NECESSARY
  13. DICLOFENAC [Concomitant]
     Active Substance: DICLOFENAC
     Dosage: AS NECESSARY
  14. VITAMIN D [Concomitant]
     Active Substance: VITAMIN D NOS
     Dosage: REGULAR BASIS
  15. PSEUDOEPHEDRINE [Concomitant]
     Active Substance: PSEUDOEPHEDRINE
     Dosage: AS-NEEDED
  16. COLLAGEN [Concomitant]
     Active Substance: COLLAGEN
     Dosage: REGULAR BASIS
  17. VITAMIN B12 [Concomitant]
     Active Substance: CYANOCOBALAMIN
     Dosage: REGULAR BASIS
  18. ROSUVASTATIN [Concomitant]
     Active Substance: ROSUVASTATIN
     Dosage: REGULAR BASIS
  19. DAPAGLIFLOZIN [Concomitant]
     Active Substance: DAPAGLIFLOZIN
     Dosage: REGULAR BASIS
  20. DOXEPIN [Suspect]
     Active Substance: DOXEPIN
     Indication: Depression
     Dosage: OCCASIONAL EXTRA 50 MG FROM AN OLDER VIAL
  21. DOXEPIN [Suspect]
     Active Substance: DOXEPIN
     Indication: Anxiety
  22. VENLAFAXINE [Suspect]
     Active Substance: VENLAFAXINE HYDROCHLORIDE
     Indication: Depression

REACTIONS (1)
  - Cognitive disorder [Recovering/Resolving]
